FAERS Safety Report 5239622-7 (Version None)
Quarter: 2007Q1

REPORT INFORMATION
  Report Type: 
  Country: None (occurrence: None)
  Receive Date: 20070216
  Receipt Date: 20070213
  Transmission Date: 20070707
  Serious: Yes (Hospitalization)
  Sender: FDA-Public Use
  Company Number: JP-JPN-A200700117

PATIENT
  Age: 44 Year
  Sex: Female

DRUGS (21)
  1. PAXIL [Suspect]
     Indication: DEPRESSION
     Route: 048
     Dates: start: 20060117, end: 20061227
  2. DEPAKENE [Concomitant]
     Route: 048
     Dates: start: 20060117, end: 20061120
  3. SENIRAN [Concomitant]
     Dosage: 9MG PER DAY
     Route: 048
     Dates: start: 20060117, end: 20061222
  4. BESACOLIN [Concomitant]
     Dosage: .6G PER DAY
     Route: 048
     Dates: start: 20060117, end: 20061222
  5. MAGNESIUM OXIDE [Concomitant]
     Dosage: 1.5G PER DAY
     Route: 048
     Dates: start: 20060117, end: 20061222
  6. LAC B [Concomitant]
     Dosage: 3G PER DAY
     Route: 048
     Dates: start: 20060117, end: 20061222
  7. PARLODEL [Concomitant]
     Dosage: 5MG PER DAY
     Route: 048
     Dates: start: 20060803, end: 20061222
  8. GANATON [Concomitant]
     Dosage: 150MG PER DAY
     Route: 048
     Dates: start: 20060117, end: 20061222
  9. MIGSIS [Concomitant]
     Dosage: 10MG PER DAY
     Route: 048
     Dates: start: 20060622, end: 20061222
  10. NEUOMIL [Concomitant]
     Dosage: 50MG PER DAY
     Route: 048
     Dates: start: 20061109, end: 20061221
  11. DORAL [Concomitant]
     Dosage: 20MG PER DAY
     Route: 048
     Dates: start: 20060817
  12. MEILAX [Concomitant]
     Dosage: 2MG PER DAY
     Route: 048
     Dates: start: 20060117
  13. FLUNITRAZEPAM [Concomitant]
     Dosage: 2MG PER DAY
     Route: 048
     Dates: start: 20060706
  14. PENTOBARBITAL CALCIUM [Concomitant]
     Dosage: 50MG PER DAY
     Route: 048
     Dates: start: 20061013
  15. ISOMYTAL [Concomitant]
     Dosage: .2G PER DAY
     Route: 048
     Dates: start: 20060117
  16. LACTOSE [Concomitant]
     Dosage: .3G PER DAY
     Route: 048
  17. CHINESE MEDICATION [Concomitant]
     Route: 048
  18. CHINESE MEDICATION [Concomitant]
     Route: 048
  19. SYLLABLE [Concomitant]
     Route: 048
     Dates: start: 20061109, end: 20061127
  20. INTEBAN [Concomitant]
     Route: 061
     Dates: start: 20061127, end: 20061207
  21. U PAN [Concomitant]
     Dosage: 3MG PER DAY
     Route: 048
     Dates: start: 20061222, end: 20061226

REACTIONS (6)
  - CEREBRAL HAEMORRHAGE [None]
  - HAEMORRHAGE SUBCUTANEOUS [None]
  - HEADACHE [None]
  - NAUSEA [None]
  - URINARY RETENTION [None]
  - VOMITING [None]
